FAERS Safety Report 9490091 (Version 1)
Quarter: 2013Q3

REPORT INFORMATION
  Report Type: Spontaneous
  Country: IT (occurrence: IT)
  Receive Date: 20130829
  Receipt Date: 20130829
  Transmission Date: 20140515
  Serious: Yes (Congenital Anomaly)
  Sender: FDA-Public Use
  Company Number: IT-MYLANLABS-2013S1018778

PATIENT
  Sex: Female

DRUGS (1)
  1. METHADONE [Suspect]
     Dosage: 35 MG/DAY
     Route: 065

REACTIONS (3)
  - Drug withdrawal syndrome neonatal [Unknown]
  - Congenital nystagmus [Not Recovered/Not Resolved]
  - Foetal exposure during pregnancy [Not Recovered/Not Resolved]
